FAERS Safety Report 5315691-0 (Version None)
Quarter: 2007Q2

REPORT INFORMATION
  Report Type: 
  Country: None (occurrence: None)
  Receive Date: 20070501
  Receipt Date: 20070501
  Transmission Date: 20071010
  Serious: No
  Sender: FDA-Public Use
  Company Number: None

PATIENT
  Age: 76 Year
  Sex: Male
  Weight: 94.5 kg

DRUGS (1)
  1. MRA/MRI GADOLINIUM-BASED CONTRAST AGENT [Suspect]

REACTIONS (7)
  - ARTERY DISSECTION [None]
  - CONTRAST MEDIA REACTION [None]
  - DIALYSIS [None]
  - NEPHROGENIC FIBROSING DERMOPATHY [None]
  - POLYMYOSITIS [None]
  - RENAL FAILURE [None]
  - WALKING AID USER [None]
